FAERS Safety Report 4539965-6 (Version None)
Quarter: 2004Q4

REPORT INFORMATION
  Report Type: 
  Country: None (occurrence: None)
  Receive Date: 20041223
  Receipt Date: 20041210
  Transmission Date: 20050328
  Serious: No
  Sender: FDA-Public Use
  Company Number: 2004AC01031

PATIENT
  Age: 60 Year
  Sex: Female

DRUGS (2)
  1. SELOKEEN ZOC [Suspect]
     Indication: HYPERTENSION
     Dates: start: 20040519
  2. BUDESONIDE + FORMOTEROL  (SYBMICORT) [Concomitant]

REACTIONS (1)
  - DERMATITIS [None]
